FAERS Safety Report 7370027-9 (Version None)
Quarter: 2011Q1

REPORT INFORMATION
  Report Type: 
  Country: None (occurrence: None)
  Receive Date: 20110323
  Receipt Date: 20110314
  Transmission Date: 20110831
  Serious: Yes (Hospitalization)
  Sender: FDA-Public Use
  Company Number: US-ASTRAZENECA-2010SE22847

PATIENT
  Age: 28948 Day
  Sex: Female

DRUGS (3)
  1. COUMADIN [Concomitant]
  2. NEXIUM [Suspect]
     Route: 048
  3. PRILOSEC OTC [Suspect]
     Route: 048

REACTIONS (11)
  - CATARACT [None]
  - COUGH [None]
  - PAIN [None]
  - DYSPNOEA [None]
  - WEIGHT DECREASED [None]
  - DRUG DOSE OMISSION [None]
  - DRUG INEFFECTIVE [None]
  - VOMITING [None]
  - ARTHROPATHY [None]
  - NASOPHARYNGITIS [None]
  - JOINT DISLOCATION [None]
